FAERS Safety Report 9965882 (Version 1)
Quarter: 2014Q1

REPORT INFORMATION
  Report Type: Report from Study
  Country: US (occurrence: US)
  Receive Date: 20140305
  Receipt Date: 20140305
  Transmission Date: 20141002
  Serious: No
  Sender: FDA-Public Use
  Company Number: US-ABBVIE-13P-163-1127289-00

PATIENT
  Age: 49 Year
  Sex: Male

DRUGS (3)
  1. HUMIRA [Suspect]
     Indication: CROHN^S DISEASE
     Dosage: LOADING DOSE 4 PENS 40MG EACH = 160 MG
     Dates: start: 20130725
  2. PREDNISONE [Concomitant]
     Indication: PRODUCT USED FOR UNKNOWN INDICATION
     Dosage: MAINTENANCE DOSE OF 2.5MG - WEANING OFF
  3. VITAMIN D [Concomitant]
     Indication: BONE DENSITY DECREASED
     Dosage: 50000 IU WEEKLY PRESCRIBED DOSE

REACTIONS (1)
  - Injection site pain [Recovered/Resolved]
